FAERS Safety Report 9522117 (Version 2)
Quarter: 2014Q3

REPORT INFORMATION
  Report Type: Spontaneous
  Country: US (occurrence: US)
  Receive Date: 20130913
  Receipt Date: 20140930
  Transmission Date: 20150326
  Serious: Yes (Hospitalization, Other)
  Sender: FDA-Public Use
  Company Number: US-BAYER-2013-110335

PATIENT
  Age: 31 Year
  Sex: Female
  Weight: 52.15 kg

DRUGS (2)
  1. LEVOTHYROXINE [Concomitant]
     Active Substance: LEVOTHYROXINE
     Indication: THYROID HORMONE REPLACEMENT THERAPY
     Dosage: UNK
     Dates: start: 200611
  2. MIRENA [Suspect]
     Active Substance: LEVONORGESTREL
     Indication: CONTRACEPTION
     Dosage: 20 MCG/24HR, CONT
     Route: 015
     Dates: start: 20090115, end: 20091120

REACTIONS (12)
  - Emotional distress [None]
  - Uterine perforation [None]
  - Dyspareunia [None]
  - Depression [None]
  - Stress [None]
  - Abdominal pain lower [None]
  - Injury [None]
  - Infertility female [None]
  - Medical device complication [None]
  - Pain [None]
  - Depressed mood [None]
  - Device issue [None]

NARRATIVE: CASE EVENT DATE: 200901
